FAERS Safety Report 11993572 (Version 3)
Quarter: 2016Q1

REPORT INFORMATION
  Report Type: Spontaneous
  Country: US (occurrence: US)
  Receive Date: 20160203
  Receipt Date: 20160225
  Transmission Date: 20160526
  Serious: No
  Sender: FDA-Public Use
  Company Number: US-PFIZER INC-2016034088

PATIENT
  Age: 47 Year
  Sex: Female

DRUGS (6)
  1. ADVIL [Suspect]
     Active Substance: IBUPROFEN
     Indication: RHINORRHOEA
  2. ADVIL [Suspect]
     Active Substance: IBUPROFEN
     Indication: NASOPHARYNGITIS
  3. ADVIL [Suspect]
     Active Substance: IBUPROFEN
     Indication: PYREXIA
     Dosage: 400 MG, AS NEEDED (2-200 MG EVERY 4-6 HRS)
     Dates: start: 20160119
  4. ADVIL [Suspect]
     Active Substance: IBUPROFEN
     Indication: PAIN
  5. ADVIL [Suspect]
     Active Substance: IBUPROFEN
     Indication: ARTHRITIS
  6. ADVIL [Suspect]
     Active Substance: IBUPROFEN
     Indication: DIZZINESS

REACTIONS (4)
  - Product use issue [Unknown]
  - Malaise [Unknown]
  - Pyrexia [Unknown]
  - Condition aggravated [Unknown]
